APPROVED DRUG PRODUCT: LEVORA 0.15/30-21
Active Ingredient: ETHINYL ESTRADIOL; LEVONORGESTREL
Strength: 0.03MG;0.15MG
Dosage Form/Route: TABLET;ORAL-21
Application: A073592 | Product #001
Applicant: WATSON LABORATORIES INC
Approved: Dec 13, 1993 | RLD: No | RS: No | Type: DISCN